FAERS Safety Report 4840914-1 (Version None)
Quarter: 2005Q4

REPORT INFORMATION
  Report Type: 
  Country: None (occurrence: None)
  Receive Date: 20051130
  Receipt Date: 20051122
  Transmission Date: 20060501
  Serious: Yes (Death)
  Sender: FDA-Public Use
  Company Number: JP-AVENTIS-200520264GDDC

PATIENT

DRUGS (5)
  1. CRAVIT [Suspect]
     Indication: TUBERCULOSIS
     Route: 048
  2. RIFAMPICIN [Suspect]
     Indication: TUBERCULOSIS
  3. ETHAMBUTOL [Suspect]
     Indication: TUBERCULOSIS
     Route: 048
  4. STREPTOMYCIN [Suspect]
     Indication: TUBERCULOSIS
  5. ISONIAZID [Suspect]
     Indication: TUBERCULOSIS

REACTIONS (5)
  - ENDOCARDITIS [None]
  - EOSINOPHILIA [None]
  - LIVER DISORDER [None]
  - RENAL DISORDER [None]
  - SUDDEN DEATH [None]
